FAERS Safety Report 6938913-9 (Version None)
Quarter: 2010Q3

REPORT INFORMATION
  Report Type: 
  Country: None (occurrence: None)
  Receive Date: 20100824
  Receipt Date: 20100816
  Transmission Date: 20110219
  Serious: Yes (Life-Threatening, Hospitalization)
  Sender: FDA-Public Use
  Company Number: B0604495B

PATIENT
  Sex: Female
  Weight: 50 kg

DRUGS (16)
  1. TYKERB [Suspect]
     Indication: BREAST CANCER
     Dosage: 1250MG PER DAY
     Route: 048
     Dates: start: 20091015, end: 20091120
  2. XELODA [Suspect]
     Dosage: 2400MG PER DAY
     Route: 048
     Dates: start: 20091016, end: 20091030
  3. MEXITIL [Concomitant]
     Indication: NEURALGIA
     Dosage: 300MG PER DAY
     Route: 048
     Dates: start: 20090907, end: 20091001
  4. MEXITIL [Concomitant]
     Dosage: 400MG PER DAY
     Route: 048
     Dates: start: 20091002, end: 20091014
  5. MEXITIL [Concomitant]
     Dosage: 200MG PER DAY
     Route: 048
     Dates: start: 20091015, end: 20091029
  6. MEXITIL [Concomitant]
     Dosage: 300MG PER DAY
     Route: 048
     Dates: start: 20091030, end: 20091104
  7. MEXITIL [Concomitant]
     Dosage: 200MG PER DAY
     Route: 048
     Dates: start: 20091105, end: 20091109
  8. RINDERON [Concomitant]
     Indication: PAIN MANAGEMENT
     Dosage: 1IUAX PER DAY
     Route: 048
     Dates: end: 20091120
  9. MUCOSTA [Concomitant]
     Indication: PAIN MANAGEMENT
     Route: 048
     Dates: end: 20091120
  10. HYPEN [Concomitant]
     Indication: PAIN MANAGEMENT
     Route: 048
     Dates: end: 20091120
  11. GABAPENTIN [Concomitant]
     Indication: PAIN MANAGEMENT
     Route: 048
     Dates: end: 20091120
  12. CEROCRAL [Concomitant]
     Indication: PAIN MANAGEMENT
     Route: 048
     Dates: end: 20091120
  13. MAGMITT [Concomitant]
     Indication: CONSTIPATION
     Route: 048
     Dates: end: 20091120
  14. OXYCONTIN [Concomitant]
     Indication: PAIN MANAGEMENT
     Route: 048
     Dates: end: 20091120
  15. DUROTEP [Concomitant]
     Indication: PAIN MANAGEMENT
     Route: 062
     Dates: end: 20091120
  16. OXINORM [Concomitant]
     Indication: PAIN MANAGEMENT
     Route: 048
     Dates: end: 20091120

REACTIONS (3)
  - ABDOMINAL DISTENSION [None]
  - ILEUS [None]
  - SEPSIS [None]
